FAERS Safety Report 6771850-1 (Version None)
Quarter: 2010Q2

REPORT INFORMATION
  Report Type: 
  Country: None (occurrence: None)
  Receive Date: 20100616
  Receipt Date: 20100607
  Transmission Date: 20101027
  Serious: Yes (Other)
  Sender: FDA-Public Use
  Company Number: ZA-JNJFOC-20100604301

PATIENT
  Age: 76 Year
  Sex: Female

DRUGS (8)
  1. LOPERAMIDE HYDROCHLORIDE [Suspect]
     Indication: DIARRHOEA
     Route: 065
  2. ANUSOL (BISMUTH OXIDE,ZINC OXIDE,BISMUTH SUBGALLATE) [Suspect]
     Indication: HAEMORRHOIDS
     Route: 054
  3. PARACETAMOL [Concomitant]
     Route: 065
  4. DIGOXIN [Concomitant]
     Route: 065
  5. SPIRONOLACTONE [Concomitant]
     Route: 065
  6. RANITIDINE HCL [Concomitant]
     Route: 065
  7. WARFARIN [Concomitant]
     Route: 065
  8. CANDESARTAN CILEXETIL [Concomitant]
     Route: 065

REACTIONS (2)
  - HAEMORRHOIDS [None]
  - MELAENA [None]
